FAERS Safety Report 7008366-3 (Version None)
Quarter: 2010Q3

REPORT INFORMATION
  Report Type: 
  Country: None (occurrence: None)
  Receive Date: 20100922
  Receipt Date: 20100915
  Transmission Date: 20110219
  Serious: Yes (Death, Hospitalization)
  Sender: FDA-Public Use
  Company Number: A0882409A

PATIENT
  Sex: Male
  Weight: 98 kg

DRUGS (1)
  1. SERETIDE [Suspect]
     Indication: ASTHMA
     Route: 055
     Dates: start: 20100401, end: 20100401

REACTIONS (2)
  - DEATH [None]
  - DRUG PRESCRIBING ERROR [None]
